FAERS Safety Report 6645656-8 (Version None)
Quarter: 2010Q1

REPORT INFORMATION
  Report Type: 
  Country: None (occurrence: None)
  Receive Date: 20100319
  Receipt Date: 20100319
  Transmission Date: 20100710
  Serious: Yes (Hospitalization)
  Sender: FDA-Public Use
  Company Number: None

PATIENT
  Age: 63 Year
  Sex: Female
  Weight: 65.7716 kg

DRUGS (3)
  1. FOSAMAX PLUS D [Suspect]
     Indication: OSTEOPENIA
     Dosage: 70MG WEEKLY PO
     Route: 048
     Dates: start: 20040625, end: 20100316
  2. FOSAMAX [Concomitant]
  3. ALENDRONATE SODIUM [Concomitant]

REACTIONS (2)
  - FALL [None]
  - FEMUR FRACTURE [None]
